FAERS Safety Report 19673717 (Version 1)
Quarter: 2021Q3

REPORT INFORMATION
  Report Type: Spontaneous
  Country: US (occurrence: US)
  Receive Date: 20210808
  Receipt Date: 20210808
  Transmission Date: 20211014
  Serious: Yes (Other)
  Sender: FDA-Public Use
  Company Number: None

PATIENT
  Age: 14 Year
  Sex: Female
  Weight: 85.5 kg

DRUGS (1)
  1. NEUTROGENA BEACH DEFENSE SUNSCREEN [Suspect]
     Active Substance: AVOBENZONE\HOMOSALATE\OCTISALATE\OCTOCRYLENE
     Indication: SUNBURN
     Route: 061
     Dates: start: 20210609, end: 20210609

REACTIONS (4)
  - Recalled product administered [None]
  - Drug ineffective [None]
  - Product contamination [None]
  - Sunburn [None]

NARRATIVE: CASE EVENT DATE: 20210609
